FAERS Safety Report 22043342 (Version 3)
Quarter: 2024Q3

REPORT INFORMATION
  Report Type: Report from Study
  Country: US (occurrence: US)
  Receive Date: 20230228
  Receipt Date: 20240906
  Transmission Date: 20241016
  Serious: Yes (Hospitalization)
  Sender: RECORDATI
  Company Number: US-ORPHANEU-2023001096

PATIENT

DRUGS (9)
  1. CARBAGLU [Suspect]
     Active Substance: CARGLUMIC ACID
     Indication: Hyperammonaemia
     Dosage: 400 MILLIGRAM, BID (ACCREDO FIRST SHIPMENT DATE: 24-OCT-2022)
     Route: 048
  2. CARBAGLU [Suspect]
     Active Substance: CARGLUMIC ACID
     Dosage: THREE 200 MG TABLET IN 2.5 ML OF WATER PER TABLET
     Route: 048
     Dates: start: 20230718
  3. CARBAGLU [Suspect]
     Active Substance: CARGLUMIC ACID
     Dosage: FOUR 200 MG TABLET IN 2.5 ML OF WATER PER TABLET
  4. CARBAGLU [Suspect]
     Active Substance: CARGLUMIC ACID
     Dosage: FIVE AND ONE HALF 200 MG TABLET IN 2.5 ML OF WATER PER TABLET
  5. IRON [Concomitant]
     Active Substance: IRON
     Indication: Product used for unknown indication
     Dosage: UNK, 159 (45) MILLIGRAM
  6. LEVOCARNITINE [Concomitant]
     Active Substance: LEVOCARNITINE
     Indication: Product used for unknown indication
     Dosage: 500 MILLIGRAM CAPSULE
     Dates: start: 20221021
  7. BIOTIN [Concomitant]
     Active Substance: BIOTIN
     Indication: Product used for unknown indication
     Dosage: 100 PERCENT POWDER
     Dates: start: 20221021
  8. D 400 [Concomitant]
     Indication: Product used for unknown indication
     Dosage: VITAMIN D 400, 10 MCG TABLET
  9. VITAMINS NOS [Concomitant]
     Active Substance: VITAMINS
     Indication: Product used for unknown indication
     Dosage: TABLET DAILY
     Dates: start: 20230420

REACTIONS (3)
  - Ammonia increased [Not Recovered/Not Resolved]
  - Ammonia increased [Unknown]
  - Anaemia [Unknown]

NARRATIVE: CASE EVENT DATE: 20230101
